FAERS Safety Report 6393513-7 (Version None)
Quarter: 2009Q4

REPORT INFORMATION
  Report Type: 
  Country: None (occurrence: None)
  Receive Date: 20091008
  Receipt Date: 20090929
  Transmission Date: 20100525
  Serious: Yes (Hospitalization)
  Sender: FDA-Public Use
  Company Number: A0809394A

PATIENT
  Age: 58 Year
  Sex: Male
  Weight: 91.8 kg

DRUGS (6)
  1. AVANDIA [Suspect]
     Dosage: 8MG PER DAY
     Dates: start: 20020301, end: 20090104
  2. PRANDIN [Concomitant]
  3. METFORMIN HCL [Concomitant]
  4. LANOXIN [Concomitant]
  5. COUMADIN [Concomitant]
  6. LASIX [Concomitant]

REACTIONS (5)
  - AORTIC STENOSIS [None]
  - CARDIOMYOPATHY [None]
  - ISCHAEMIC CARDIOMYOPATHY [None]
  - MYOCARDIAL INFARCTION [None]
  - MYOCARDIAL ISCHAEMIA [None]
